FAERS Safety Report 17766586 (Version 1)
Quarter: 2020Q2

REPORT INFORMATION
  Report Type: Spontaneous
  Country: US (occurrence: US)
  Receive Date: 20200511
  Receipt Date: 20200511
  Transmission Date: 20200714
  Serious: No
  Sender: FDA-Public Use
  Company Number: None

PATIENT
  Sex: Female

DRUGS (1)
  1. FLUOCINONIDE 0.1% OINTMENT [Suspect]
     Active Substance: FLUOCINONIDE

REACTIONS (1)
  - Drug ineffective [None]
